FAERS Safety Report 9431938 (Version 1)
Quarter: 2013Q3

REPORT INFORMATION
  Report Type: Spontaneous
  Country: CA (occurrence: CA)
  Receive Date: 20130731
  Receipt Date: 20130731
  Transmission Date: 20140515
  Serious: Yes (Other)
  Sender: FDA-Public Use
  Company Number: CA-TEVA-422095USA

PATIENT
  Age: 79 Year
  Sex: Male
  Weight: 67.65 kg

DRUGS (1)
  1. FINASTERIDE [Suspect]
     Dosage: 5 MILLIGRAM DAILY;
     Route: 048

REACTIONS (2)
  - Constipation [Recovered/Resolved]
  - Product substitution issue [Recovered/Resolved]
